FAERS Safety Report 13977659 (Version 1)
Quarter: 2017Q3

REPORT INFORMATION
  Report Type: Spontaneous
  Country: DE (occurrence: DE)
  Receive Date: 20170915
  Receipt Date: 20170915
  Transmission Date: 20171128
  Serious: Yes (Hospitalization)
  Sender: FDA-Public Use
  Company Number: DE-ALKEM LABORATORIES LIMITED-DE-ALKEM-2017-00599

PATIENT
  Age: 25 Year
  Sex: Female
  Weight: 65 kg

DRUGS (2)
  1. QUETIAPINE FUMARATE. [Suspect]
     Active Substance: QUETIAPINE FUMARATE
     Indication: DEPRESSION
     Dosage: 10 G OF QUETIAPINE (150 MG / KGKG)
     Route: 065
  2. AMITRIPTYLINE [Suspect]
     Active Substance: AMITRIPTYLINE
     Indication: DEPRESSION
     Dosage: 5.5 G OF AMITRIPTYLINE (85 MG / KGKG)
     Route: 065

REACTIONS (9)
  - Overdose [Unknown]
  - Cardiogenic shock [Unknown]
  - Coma [Unknown]
  - Body temperature decreased [Unknown]
  - Toxicity to various agents [Unknown]
  - Arrhythmia [Unknown]
  - Suicide attempt [Unknown]
  - Bradypnoea [Unknown]
  - Anticholinergic syndrome [Unknown]
